FAERS Safety Report 5762288-4 (Version None)
Quarter: 2008Q2

REPORT INFORMATION
  Report Type: 
  Country: None (occurrence: None)
  Receive Date: 20080609
  Receipt Date: 20080602
  Transmission Date: 20081010
  Serious: Yes (Other)
  Sender: FDA-Public Use
  Company Number: US-BAYER-200811304NA

PATIENT
  Age: 53 Year
  Sex: Female

DRUGS (9)
  1. CAMPATH [Suspect]
     Indication: CHRONIC LYMPHOCYTIC LEUKAEMIA
     Dosage: TOTAL DAILY DOSE: 10 MG
     Route: 042
     Dates: start: 20070817, end: 20070817
  2. CAMPATH [Suspect]
     Dosage: TOTAL DAILY DOSE: 3 MG
     Route: 042
     Dates: start: 20070806, end: 20070806
  3. CAMPATH [Suspect]
     Dosage: TOTAL DAILY DOSE: 30 MG
     Route: 042
     Dates: start: 20070820, end: 20071105
  4. BACTRIM DS [Suspect]
     Indication: INFECTION PROPHYLAXIS
     Route: 048
  5. ACYCLOVIR [Concomitant]
     Indication: INFECTION PROPHYLAXIS
     Route: 048
     Dates: start: 20070907
  6. ALBUTEROL [Concomitant]
  7. HYDROCHLOROTHIAZIDE [Concomitant]
  8. K-DUR [Concomitant]
  9. MASPMEX [Concomitant]

REACTIONS (5)
  - ACUTE FEBRILE NEUTROPHILIC DERMATOSIS [None]
  - PANCYTOPENIA [None]
  - RASH GENERALISED [None]
  - SKIN LESION [None]
  - URTICARIA [None]
